FAERS Safety Report 12191828 (Version 2)
Quarter: 2016Q2

REPORT INFORMATION
  Report Type: Spontaneous
  Country: US (occurrence: US)
  Receive Date: 20160318
  Receipt Date: 20160408
  Transmission Date: 20160815
  Serious: Yes (Other)
  Sender: FDA-Public Use
  Company Number: US-PFIZER INC-2015363474

PATIENT
  Age: 51 Year
  Sex: Female

DRUGS (4)
  1. PRISTIQ EXTENDED-RELEASE [Suspect]
     Active Substance: DESVENLAFAXINE SUCCINATE
     Indication: DEPRESSION
     Dosage: 100 MG, 1X/DAY
     Dates: start: 2016, end: 201603
  2. FETZIMA [Concomitant]
     Active Substance: LEVOMILNACIPRAN HYDROCHLORIDE
  3. ASPIRIN. [Concomitant]
     Active Substance: ASPIRIN
     Dosage: 80 ML, UNK
  4. PRISTIQ EXTENDED-RELEASE [Suspect]
     Active Substance: DESVENLAFAXINE SUCCINATE
     Indication: ANXIETY
     Dosage: 100 MG, 1X/DAY
     Dates: start: 2010, end: 2015

REACTIONS (3)
  - Malaise [Unknown]
  - Drug withdrawal syndrome [Unknown]
  - Seizure [Unknown]

NARRATIVE: CASE EVENT DATE: 201603
